FAERS Safety Report 17053847 (Version 1)
Quarter: 2019Q4

REPORT INFORMATION
  Report Type: Spontaneous
  Country: GB (occurrence: GB)
  Receive Date: 20191120
  Receipt Date: 20191120
  Transmission Date: 20200122
  Serious: Yes (Other)
  Sender: FDA-Public Use
  Company Number: GB-ARRAY-2019-06759

PATIENT

DRUGS (4)
  1. BRAFTOVI [Suspect]
     Active Substance: ENCORAFENIB
     Indication: COLORECTAL CANCER METASTATIC
     Dosage: 75 MG, UNKNOWN
     Route: 048
  2. INSULIN [Concomitant]
     Active Substance: INSULIN NOS
     Dosage: 80 IU, QD (1/DAY)
  3. MEKTOVI [Suspect]
     Active Substance: BINIMETINIB
     Indication: COLORECTAL CANCER METASTATIC
     Dosage: 15 MG, UNKNOWN
     Route: 048
  4. INSULIN [Concomitant]
     Active Substance: INSULIN NOS
     Indication: TYPE 2 DIABETES MELLITUS
     Dosage: 140 IU, QD (1/DAY)
     Route: 065

REACTIONS (2)
  - Product use in unapproved indication [Unknown]
  - Hypoglycaemia [Unknown]
